FAERS Safety Report 17658874 (Version 2)
Quarter: 2020Q2

REPORT INFORMATION
  Report Type: Report from Study
  Country: FR (occurrence: FR)
  Receive Date: 20200413
  Receipt Date: 20200422
  Transmission Date: 20200713
  Serious: Yes (Hospitalization)
  Sender: FDA-Public Use
  Company Number: FR-CELLTRION INC.-2020FR021425

PATIENT

DRUGS (3)
  1. INFLECTRA [Suspect]
     Active Substance: INFLIXIMAB-DYYB
     Indication: CROHN^S DISEASE
     Dosage: 5 MG/KG, EVERY 8 WEEKS
     Route: 042
     Dates: start: 20170803
  2. ESOMEPRAZOLE. [Concomitant]
     Active Substance: ESOMEPRAZOLE MAGNESIUM
     Indication: GASTROOESOPHAGEAL REFLUX DISEASE
     Dosage: 15 MG, UNK
  3. CORTANCYL [Suspect]
     Active Substance: PREDNISONE
     Indication: CROHN^S DISEASE
     Dosage: 10 MG, DAILY
     Route: 048
     Dates: start: 20170718

REACTIONS (6)
  - Osteonecrosis [Recovered/Resolved]
  - Crohn^s disease [Recovered/Resolved]
  - Colon adenoma [Recovered/Resolved]
  - Arthropathy [Recovered/Resolved]
  - Large intestine polyp [Recovered/Resolved]
  - Autoimmune disorder [Recovering/Resolving]

NARRATIVE: CASE EVENT DATE: 20180209
